FAERS Safety Report 12483005 (Version 5)
Quarter: 2016Q4

REPORT INFORMATION
  Report Type: Spontaneous
  Country: FR (occurrence: FR)
  Receive Date: 20160620
  Receipt Date: 20161017
  Transmission Date: 20170207
  Serious: Yes (Disabling, Other)
  Sender: FDA-Public Use
  Company Number: FR-ALLERGAN-1660355US

PATIENT
  Age: 52 Year
  Sex: Female

DRUGS (3)
  1. VISTABEL [Suspect]
     Active Substance: BOTULINUM TOXIN TYPE A
     Indication: SKIN WRINKLING
     Dosage: 50 UNITS, SINGLE
     Route: 030
     Dates: start: 20160602, end: 20160602
  2. JUVEDERM VOLUMA XC [Suspect]
     Active Substance: HYALURONIC ACID\LIDOCAINE HYDROCHLORIDE
     Indication: PRODUCT USED FOR UNKNOWN INDICATION
     Dosage: UNK UNK, SINGLE
     Dates: start: 20160602, end: 20160602
  3. JUVEDERM [Suspect]
     Active Substance: HYALURONIC ACID
     Indication: DARK CIRCLES UNDER EYES
     Dosage: 0.3 ML, SINGLE
     Dates: start: 20160602, end: 20160602

REACTIONS (12)
  - Off label use [Unknown]
  - Pruritus [Recovering/Resolving]
  - Angioedema [Not Recovered/Not Resolved]
  - Chest pain [Recovering/Resolving]
  - Dyspnoea [Recovering/Resolving]
  - Injection site cyst [Unknown]
  - Lymphoedema [Not Recovered/Not Resolved]
  - Palpitations [Recovering/Resolving]
  - Headache [Recovering/Resolving]
  - Sleep disorder [Unknown]
  - Asthenia [Recovering/Resolving]
  - Dysphagia [Not Recovered/Not Resolved]

NARRATIVE: CASE EVENT DATE: 20160607
